FAERS Safety Report 10911879 (Version 1)
Quarter: 2015Q1

REPORT INFORMATION
  Report Type: Spontaneous
  Country: TW (occurrence: None)
  Receive Date: 20150309
  Receipt Date: 20150309
  Transmission Date: 20150721
  Serious: Yes (Hospitalization)
  Sender: FDA-Public Use
  Company Number: NSR_01986_2015

PATIENT
  Age: 79 Year
  Sex: Male

DRUGS (1)
  1. ALLOPURINOL (ALLOPURINOL) [Suspect]
     Active Substance: ALLOPURINOL
     Indication: PRODUCT USED FOR UNKNOWN INDICATION
     Dosage: DF

REACTIONS (4)
  - Drug reaction with eosinophilia and systemic symptoms [None]
  - Tubulointerstitial nephritis [None]
  - Liver disorder [None]
  - Chronic kidney disease [None]
